FAERS Safety Report 21370069 (Version 2)
Quarter: 2022Q4

REPORT INFORMATION
  Report Type: Spontaneous
  Country: JP (occurrence: JP)
  Receive Date: 20220923
  Receipt Date: 20221115
  Transmission Date: 20230113
  Serious: Yes (Hospitalization)
  Sender: FDA-Public Use
  Company Number: JP-PFIZER INC-2021389454

PATIENT
  Sex: Male

DRUGS (9)
  1. SIROLIMUS [Suspect]
     Active Substance: SIROLIMUS
     Indication: Intravascular papillary endothelial hyperplasia
     Dosage: 0.8 MG/M2,12 HR
     Route: 048
     Dates: start: 20210331, end: 20210414
  2. SIROLIMUS [Suspect]
     Active Substance: SIROLIMUS
     Dosage: 0.3 MG,12 HR
     Route: 048
     Dates: start: 20210414
  3. PREDNISOLONE [Concomitant]
     Active Substance: PREDNISOLONE
     Indication: Intravascular papillary endothelial hyperplasia
     Dosage: 1 MG, 8 HR
     Route: 065
     Dates: start: 20210331, end: 20210401
  4. PREDNISOLONE [Concomitant]
     Active Substance: PREDNISOLONE
     Dosage: 1 MG,12 HR
     Route: 065
     Dates: start: 20210402
  5. FAMOTIDINE [Concomitant]
     Active Substance: FAMOTIDINE
     Indication: Gastritis
     Dosage: 2.4 MG, 12 HR
     Route: 065
     Dates: start: 20210331, end: 20210403
  6. NICARDIPINE HYDROCHLORIDE [Concomitant]
     Active Substance: NICARDIPINE HYDROCHLORIDE
     Indication: Hypertension
     Dosage: 3.6 MG
     Route: 042
     Dates: start: 20210331, end: 20210402
  7. PROPRANOLOL HYDROCHLORIDE [Concomitant]
     Active Substance: PROPRANOLOL HYDROCHLORIDE
     Indication: Intravascular papillary endothelial hyperplasia
     Dosage: 4.4 ML, 12 HR
     Route: 065
     Dates: start: 20210331, end: 20210402
  8. AMLODIPINE [Concomitant]
     Active Substance: AMLODIPINE BESYLATE
     Indication: Hypertension
     Dosage: 0.5 MG, 1 D
     Route: 065
     Dates: start: 20210331, end: 20210406
  9. PANTETHINE [Concomitant]
     Active Substance: PANTETHINE
     Indication: Constipation
     Dosage: 0.05 MG, 1 D
     Route: 065
     Dates: start: 20210331, end: 20210411

REACTIONS (4)
  - Hypogammaglobulinaemia [Recovered/Resolved]
  - Off label use [Unknown]
  - Product administered to patient of inappropriate age [Unknown]
  - Wrong technique in product usage process [Unknown]

NARRATIVE: CASE EVENT DATE: 20211203
